FAERS Safety Report 19460114 (Version 2)
Quarter: 2021Q2

REPORT INFORMATION
  Report Type: Spontaneous
  Country: US (occurrence: US)
  Receive Date: 20210625
  Receipt Date: 20210625
  Transmission Date: 20210717
  Serious: Yes (Life-Threatening, Hospitalization, Other)
  Sender: FDA-Public Use
  Company Number: US-HIKMA PHARMACEUTICALS USA INC.-US-H14001-19-02440

PATIENT
  Age: 70 Year
  Sex: Male

DRUGS (5)
  1. METHOTREXATE. [Suspect]
     Active Substance: METHOTREXATE
     Indication: SARCOIDOSIS
  2. PREDNISONE. [Suspect]
     Active Substance: PREDNISONE
     Indication: SARCOIDOSIS
  3. METHOTREXATE. [Suspect]
     Active Substance: METHOTREXATE
     Indication: RHEUMATOID ARTHRITIS
     Route: 065
  4. PREDNISONE. [Suspect]
     Active Substance: PREDNISONE
     Indication: RHEUMATOID ARTHRITIS
     Route: 065
  5. OXYGEN. [Concomitant]
     Active Substance: OXYGEN
     Indication: CHRONIC OBSTRUCTIVE PULMONARY DISEASE
     Route: 065

REACTIONS (16)
  - Dehydration [Unknown]
  - Duodenal ulcer [Unknown]
  - Bacterial translocation [Unknown]
  - Gingivitis [Recovered/Resolved]
  - Septic shock [Unknown]
  - Bacteraemia [Unknown]
  - Gastric ulcer [Unknown]
  - Deep vein thrombosis [Recovered/Resolved]
  - Capnocytophaga infection [Unknown]
  - Erosive oesophagitis [Unknown]
  - Respiratory failure [Unknown]
  - Periodontitis [Unknown]
  - Upper gastrointestinal haemorrhage [Unknown]
  - Acute kidney injury [Unknown]
  - Pneumonia [Unknown]
  - Diarrhoea [Unknown]
